FAERS Safety Report 16879948 (Version 1)
Quarter: 2019Q3

REPORT INFORMATION
  Report Type: Spontaneous
  Country: US (occurrence: US)
  Receive Date: 20190807
  Receipt Date: 20190807
  Transmission Date: 20191007
  Serious: Yes (Hospitalization)
  Sender: FDA-Public Use
  Company Number: None

PATIENT
  Age: 60 Year
  Sex: Female

DRUGS (12)
  1. BENICAR [Concomitant]
     Active Substance: OLMESARTAN MEDOXOMIL
  2. VITA-PLUS E [Concomitant]
  3. OMEPRAZOLE. [Concomitant]
     Active Substance: OMEPRAZOLE
  4. TRAZODONE [Concomitant]
     Active Substance: TRAZODONE HYDROCHLORIDE
  5. SULINDAC. [Concomitant]
     Active Substance: SULINDAC
  6. CALCIFEROL DRO [Concomitant]
  7. DULOCETINE [Concomitant]
  8. ENBREL [Suspect]
     Active Substance: ETANERCEPT
     Indication: RHEUMATOID ARTHRITIS
     Route: 058
  9. PLAQUENIL [Concomitant]
     Active Substance: HYDROXYCHLOROQUINE SULFATE
  10. METHOTREXATE. [Concomitant]
     Active Substance: METHOTREXATE
  11. SULFASALAZINE DELAYED-RELEASE [Concomitant]
     Active Substance: SULFASALAZINE
  12. FOLIC ACID. [Concomitant]
     Active Substance: FOLIC ACID

REACTIONS (1)
  - Knee operation [None]

NARRATIVE: CASE EVENT DATE: 20190521
